FAERS Safety Report 21631818 (Version 2)
Quarter: 2022Q4

REPORT INFORMATION
  Report Type: Report from Study
  Country: CO (occurrence: CO)
  Receive Date: 20221123
  Receipt Date: 20221209
  Transmission Date: 20230112
  Serious: Yes (Other)
  Sender: FDA-Public Use
  Company Number: CO-002147023-NVSC2022CO050358

PATIENT
  Sex: Female
  Weight: 69 kg

DRUGS (9)
  1. KISQALI [Suspect]
     Active Substance: RIBOCICLIB
     Indication: Breast cancer metastatic
     Dosage: 600 MG, QD
     Route: 048
     Dates: start: 202203
  2. KISQALI [Suspect]
     Active Substance: RIBOCICLIB
     Indication: Hormone receptor positive HER2 negative breast cancer
     Dosage: 600 MG, QD
     Route: 048
  3. KISQALI [Suspect]
     Active Substance: RIBOCICLIB
     Dosage: UNK (2 TABLETS AT 2 IN THE AFTERNOON)
     Route: 048
  4. KISQALI [Suspect]
     Active Substance: RIBOCICLIB
     Dosage: UNK (TAKE 3 TABLETS DAILY FOR 21 DAYS)
     Route: 048
  5. KISQALI [Suspect]
     Active Substance: RIBOCICLIB
     Dosage: UNK UNK, QD
     Route: 048
  6. FULVESTRANT [Suspect]
     Active Substance: FULVESTRANT
     Indication: Product used for unknown indication
     Dosage: UNK
     Route: 065
  7. FULVESTRANT [Suspect]
     Active Substance: FULVESTRANT
     Dosage: FIRST 5 DOSES, SHE HAD TO APPLY 1 DOSE (DOES NOT REMEMBER GRAMS) EVERY 15 DAYS AND THEN START 1 DOSE
     Route: 030
     Dates: start: 202203
  8. FULVESTRANT [Suspect]
     Active Substance: FULVESTRANT
     Dosage: UNK,FIRST 5 DOSES, SHE HAD TO APPLY 1 DOSE (DOES NOT REMEMBER GRAMS) EVERY 15 DAYS
     Route: 030
  9. ENALAPRIL [Concomitant]
     Active Substance: ENALAPRIL
     Indication: Hypertension
     Dosage: 50 MG, QD
     Route: 048

REACTIONS (17)
  - Metastases to bone [Unknown]
  - Abdominal discomfort [Unknown]
  - Malaise [Unknown]
  - Vomiting [Unknown]
  - Headache [Unknown]
  - Decreased immune responsiveness [Unknown]
  - Bone pain [Unknown]
  - Diarrhoea [Unknown]
  - Nausea [Unknown]
  - Alopecia [Unknown]
  - Arthralgia [Unknown]
  - Influenza [Unknown]
  - Secretion discharge [Unknown]
  - Feeling hot [Unknown]
  - Oropharyngeal pain [Unknown]
  - Pyrexia [Unknown]
  - Fatigue [Unknown]
